FAERS Safety Report 6134244-8 (Version None)
Quarter: 2009Q1

REPORT INFORMATION
  Report Type: 
  Country: None (occurrence: None)
  Receive Date: 20090325
  Receipt Date: 20090306
  Transmission Date: 20090719
  Serious: Yes (Other)
  Sender: FDA-Public Use
  Company Number: 2009BI005899

PATIENT
  Age: 59 Year
  Sex: Male

DRUGS (7)
  1. ZEVALIN [Suspect]
     Indication: MANTLE CELL LYMPHOMA
     Dosage: 31 MCI; 1X; IV
     Route: 042
     Dates: start: 20090116, end: 20090116
  2. ZEVALIN [Suspect]
     Indication: STEM CELL TRANSPLANT
     Dosage: 31 MCI; 1X; IV
     Route: 042
     Dates: start: 20090116, end: 20090116
  3. RITUXIMAB [Concomitant]
  4. FLUDARABINE PHOSPHATE [Concomitant]
  5. MELPHALAN [Concomitant]
  6. ENALAPRIL [Concomitant]
  7. AMCHAFIBRIN [Concomitant]

REACTIONS (2)
  - BLOOD BLISTER [None]
  - STOMATITIS [None]
